FAERS Safety Report 8771223 (Version 2)
Quarter: 2012Q4

REPORT INFORMATION
  Report Type: Report from Study
  Country: US (occurrence: US)
  Receive Date: 20120906
  Receipt Date: 20121005
  Transmission Date: 20130627
  Serious: Yes (Life-Threatening, Hospitalization)
  Sender: FDA-Public Use
  Company Number: US-BRISTOL-MYERS SQUIBB COMPANY-16760951

PATIENT
  Age: 66 Year
  Sex: Male
  Weight: 100 kg

DRUGS (3)
  1. SPRYCEL [Suspect]
     Indication: ACUTE MYELOID LEUKAEMIA
     Dosage: recent dose 12Jun12, 800mg 12Jun12,Last administered date:25Jul2012
course 3
     Route: 048
     Dates: start: 20120525
  2. CYTARABINE [Suspect]
     Indication: ACUTE MYELOID LEUKAEMIA
     Dosage: recent dse 1Jn12,13440mg 14Jul12,Dose:4240mg,Last administered date:29Aug2012.course 3.200mg/m2/day
     Dates: start: 20120525
  3. DAUNORUBICIN [Suspect]
     Indication: ACUTE MYELOID LEUKAEMIA
     Dosage: recent dose 27May12,inj,20mg/4ml,course 3.60mg/m2/day IVP on days1-3,Last administered date:12Jun12
     Dates: start: 20120524

REACTIONS (6)
  - Sepsis [Recovering/Resolving]
  - Renal failure acute [Recovering/Resolving]
  - Decreased appetite [Recovering/Resolving]
  - Melaena [Recovering/Resolving]
  - Neutrophil count decreased [Recovering/Resolving]
  - Atrial flutter [Recovering/Resolving]
